FAERS Safety Report 7484654-1 (Version None)
Quarter: 2011Q2

REPORT INFORMATION
  Report Type: 
  Country: None (occurrence: None)
  Receive Date: 20110517
  Receipt Date: 20101130
  Transmission Date: 20111010
  Serious: Yes (Other)
  Sender: FDA-Public Use
  Company Number: US-BAYER-200941674NA

PATIENT
  Sex: Female
  Weight: 65.76 kg

DRUGS (7)
  1. HYDROCODONE BITARTRATE [Concomitant]
  2. YAZ [Suspect]
     Indication: PRODUCT USED FOR UNKNOWN INDICATION
  3. FLUTICASONE PROPIONATE [Concomitant]
     Dosage: 50 MCG/24HR, UNK
     Route: 045
     Dates: start: 20060831, end: 20090721
  4. AZITHROMYCIN [Concomitant]
     Dosage: 250 MG, UNK
     Route: 048
     Dates: start: 20070326, end: 20100306
  5. YASMIN [Suspect]
     Indication: PRODUCT USED FOR UNKNOWN INDICATION
  6. FLONASE [Concomitant]
  7. GENITO URINARY SYSTEM AND SEX HORMONES [Concomitant]
     Indication: VAGINAL HAEMORRHAGE
     Dosage: UNK
     Dates: start: 20080501

REACTIONS (3)
  - PULMONARY EMBOLISM [None]
  - DYSPNOEA [None]
  - NON-CARDIAC CHEST PAIN [None]
